FAERS Safety Report 9924860 (Version 1)
Quarter: 2014Q1

REPORT INFORMATION
  Report Type: Spontaneous
  Country: US (occurrence: US)
  Receive Date: 20140226
  Receipt Date: 20140226
  Transmission Date: 20141002
  Serious: No
  Sender: FDA-Public Use
  Company Number: US-BAYER-2014-029967

PATIENT
  Age: 82 Year
  Sex: Female
  Weight: 83.9 kg

DRUGS (8)
  1. ALEVE CAPLET [Suspect]
     Indication: ARTHRITIS
     Dosage: 1 DF, QD
     Route: 048
     Dates: start: 201401, end: 20140224
  2. IBUPROFEN [Concomitant]
  3. VITAMIN D [Concomitant]
  4. SERTRALINE [Concomitant]
  5. PRAMIPEXOLE [Concomitant]
  6. TRIBENZOR [Concomitant]
  7. BYSTOLIC [Concomitant]
  8. FISH OIL [Concomitant]

REACTIONS (1)
  - Incorrect drug administration duration [None]
